FAERS Safety Report 9350489 (Version 1)
Quarter: 2013Q2

REPORT INFORMATION
  Report Type: Spontaneous
  Country: US (occurrence: US)
  Receive Date: 20130617
  Receipt Date: 20130617
  Transmission Date: 20140414
  Serious: Yes (Hospitalization)
  Sender: FDA-Public Use
  Company Number: US-B.I. PHARMACEUTICALS,INC./RIDGEFIELD-2013-BI-16886BP

PATIENT
  Age: 73 Year
  Sex: Female

DRUGS (14)
  1. SPIRIVA [Suspect]
     Indication: CHRONIC OBSTRUCTIVE PULMONARY DISEASE
     Dosage: 18 MCG
     Route: 055
     Dates: start: 2008
  2. COMBIVENT [Suspect]
     Indication: CHRONIC OBSTRUCTIVE PULMONARY DISEASE
     Dosage: STRENGTH: 20 MCG / 100 MCG; DAILY DOSE: 80 MCG / 400 MCG
     Route: 055
     Dates: start: 201212
  3. ALBUTEROL NEBULIZER [Concomitant]
     Indication: CHRONIC OBSTRUCTIVE PULMONARY DISEASE
     Route: 055
  4. JANUVIA [Concomitant]
     Dosage: 100 MG
     Route: 048
  5. POTASSIUM [Concomitant]
     Dosage: 10 MEQ
     Route: 048
  6. OMEPRAZOLE [Concomitant]
     Dosage: 20 MG
     Route: 048
  7. SIMVASTATIN [Concomitant]
     Indication: BLOOD CHOLESTEROL INCREASED
     Dosage: 40 MG
     Route: 048
  8. LASIX [Concomitant]
     Dosage: 80 MG
     Route: 048
  9. BIDIL [Concomitant]
     Dosage: 1.5 MG
     Route: 048
  10. ZETIA [Concomitant]
     Dosage: 10 MG
     Route: 048
  11. WARFARIN [Concomitant]
     Dosage: 2.5 MG
     Route: 048
  12. CALCITRIOL [Concomitant]
     Dosage: 0.25 MG
     Route: 048
  13. SINGULAIR [Concomitant]
     Dosage: 10 MG
     Route: 048
  14. GLIPIZIDE [Concomitant]
     Indication: DIABETES MELLITUS
     Dosage: 5 MG
     Route: 048

REACTIONS (2)
  - Thrombosis [Recovered/Resolved]
  - Local swelling [Not Recovered/Not Resolved]
